FAERS Safety Report 9861742 (Version 2)
Quarter: 2014Q1

REPORT INFORMATION
  Report Type: Report from Study
  Country: GB (occurrence: GB)
  Receive Date: 20140203
  Receipt Date: 20140313
  Transmission Date: 20141002
  Serious: Yes (Death, Other)
  Sender: FDA-Public Use
  Company Number: GB-ROCHE-1339130

PATIENT
  Sex: Male
  Weight: 103 kg

DRUGS (11)
  1. RITUXIMAB [Suspect]
     Indication: RHEUMATOID ARTHRITIS
     Dosage: LAST DOSE PRIOR TO SAE: 05/OCT/2010
     Route: 065
     Dates: start: 20100922
  2. LEFLUNOMIDE [Concomitant]
     Route: 042
  3. HYDROXYCHLOROQUINE [Concomitant]
  4. GENTAMYCIN [Concomitant]
  5. VANCOMYCIN [Concomitant]
  6. BISOPROLOL [Concomitant]
  7. OMEPRAZOLE [Concomitant]
  8. RAMIPRIL [Concomitant]
  9. SIMVASTATIN [Concomitant]
  10. PARACETAMOL [Concomitant]
  11. CODEINE [Concomitant]

REACTIONS (5)
  - Pneumonia [Fatal]
  - Pulmonary fibrosis [Fatal]
  - Chronic obstructive pulmonary disease [Fatal]
  - Myocardial ischaemia [Unknown]
  - Sepsis [Fatal]
